FAERS Safety Report 21694914 (Version 1)
Quarter: 2022Q4

REPORT INFORMATION
  Report Type: Report from Study
  Country: PR (occurrence: PR)
  Receive Date: 20221207
  Receipt Date: 20221207
  Transmission Date: 20230113
  Serious: No
  Sender: FDA-Public Use
  Company Number: PR-ABBVIE-4181170

PATIENT
  Sex: Female
  Weight: 83.914 kg

DRUGS (4)
  1. HUMIRA [Suspect]
     Active Substance: ADALIMUMAB
     Indication: Crohn^s disease
     Dosage: 40 MG
     Route: 058
     Dates: start: 20131001
  2. Pfizer BioNTech vaccine [Concomitant]
     Indication: COVID-19
     Dosage: 1ST DOSE
     Route: 030
  3. Pfizer BioNTech vaccine [Concomitant]
     Indication: COVID-19
     Dosage: 3RD DOSE
     Route: 030
  4. Pfizer BioNTech vaccine [Concomitant]
     Indication: COVID-19
     Dosage: 2ND DOSE
     Route: 030

REACTIONS (7)
  - Arthritis [Not Recovered/Not Resolved]
  - Muscle rigidity [Not Recovered/Not Resolved]
  - Inflammation [Not Recovered/Not Resolved]
  - Joint range of motion decreased [Not Recovered/Not Resolved]
  - Diarrhoea [Not Recovered/Not Resolved]
  - Colitis [Not Recovered/Not Resolved]
  - Neck pain [Not Recovered/Not Resolved]

NARRATIVE: CASE EVENT DATE: 20210101
